FAERS Safety Report 25499471 (Version 1)
Quarter: 2025Q2

REPORT INFORMATION
  Report Type: Spontaneous
  Country: US (occurrence: None)
  Receive Date: 20250627
  Receipt Date: 20250627
  Transmission Date: 20250717
  Serious: Yes (Other)
  Sender: FDA-CTU
  Company Number: None

PATIENT
  Age: 71 Year
  Sex: Female
  Weight: 74.25 kg

DRUGS (23)
  1. BUPRENORPHINE\NALOXONE [Suspect]
     Active Substance: BUPRENORPHINE\NALOXONE
     Indication: Pain
     Dosage: 1 TABLET (S) TWICE A DAY SUBLINGUAL ?
     Route: 060
  2. ALPRAZOLAM [Concomitant]
     Active Substance: ALPRAZOLAM
  3. Anatole [Concomitant]
  4. ARIPIPRAZOLE [Concomitant]
     Active Substance: ARIPIPRAZOLE
  5. baclopehn [Concomitant]
  6. dapaglifozen propanediol [Concomitant]
  7. DULOXETINE [Concomitant]
     Active Substance: DULOXETINE
  8. GABAPENTIN [Concomitant]
     Active Substance: GABAPENTIN
  9. GLUCOPHAGE [Concomitant]
     Active Substance: METFORMIN HYDROCHLORIDE
  10. iron IV [Concomitant]
  11. LEVOTHYROXINE [Concomitant]
     Active Substance: LEVOTHYROXINE
  12. METHYLPHENIDATE [Concomitant]
     Active Substance: METHYLPHENIDATE
  13. VILAZODONE [Concomitant]
     Active Substance: VILAZODONE
  14. ZOLPIDEM [Concomitant]
     Active Substance: ZOLPIDEM TARTRATE
  15. CYANOCOBALAMIN [Concomitant]
     Active Substance: CYANOCOBALAMIN
  16. LEVOMEFOLIC ACID [Concomitant]
     Active Substance: LEVOMEFOLIC ACID
  17. VITAMIN C [Concomitant]
     Active Substance: ASCORBIC ACID
  18. BIOTIN [Concomitant]
     Active Substance: BIOTIN
  19. TYLENOL [Concomitant]
     Active Substance: ACETAMINOPHEN
  20. CALCIUM [Concomitant]
     Active Substance: CALCIUM
  21. MAGNESIUM [Concomitant]
     Active Substance: MAGNESIUM
  22. Beet Root [Concomitant]
  23. VITAMINS [Concomitant]
     Active Substance: VITAMINS

REACTIONS (3)
  - Dental caries [None]
  - Tooth loss [None]
  - Tooth fracture [None]

NARRATIVE: CASE EVENT DATE: 20231214
